FAERS Safety Report 6326396-1 (Version None)
Quarter: 2009Q3

REPORT INFORMATION
  Report Type: 
  Country: None (occurrence: None)
  Receive Date: 20090824
  Receipt Date: 20090811
  Transmission Date: 20100115
  Serious: Yes (Other)
  Sender: FDA-Public Use
  Company Number: DE-ELI_LILLY_AND_COMPANY-DE200908002396

PATIENT
  Sex: Female
  Weight: 57 kg

DRUGS (5)
  1. CYMBALTA [Suspect]
     Indication: DEPRESSION
     Dosage: 30 MG, DAILY (1/D)
     Route: 048
     Dates: start: 20080101, end: 20090804
  2. CYMBALTA [Suspect]
     Dosage: 80 MG, UNKNOWN
     Route: 065
     Dates: start: 20090801, end: 20090801
  3. CYMBALTA [Suspect]
     Dosage: 30 MG, EVERY SECOND DAY
     Route: 065
     Dates: start: 20090801
  4. ERGENYL [Concomitant]
     Indication: BIPOLAR DISORDER
     Dosage: 600 MG, 2/D
     Route: 048
     Dates: start: 20080101
  5. PERPHENAZINE [Concomitant]
     Indication: HYPOMANIA
     Dosage: 1-2 X 4MG / D
     Route: 048
     Dates: start: 20090801

REACTIONS (10)
  - ABDOMINAL DISTENSION [None]
  - ACCOMMODATION DISORDER [None]
  - CHILLS [None]
  - DIARRHOEA [None]
  - DIZZINESS [None]
  - DRUG WITHDRAWAL SYNDROME [None]
  - MOOD SWINGS [None]
  - NAUSEA [None]
  - RESTLESSNESS [None]
  - TINNITUS [None]
